FAERS Safety Report 16442970 (Version 1)
Quarter: 2019Q2

REPORT INFORMATION
  Report Type: Spontaneous
  Country: IT (occurrence: IT)
  Receive Date: 20190617
  Receipt Date: 20190617
  Transmission Date: 20190711
  Serious: Yes (Hospitalization)
  Sender: FDA-Public Use
  Company Number: PHHY2019IT135012

PATIENT
  Age: 55 Year
  Sex: Female

DRUGS (1)
  1. OLANZAPINE. [Suspect]
     Active Substance: OLANZAPINE
     Indication: DRUG ABUSE
     Dosage: 140 MG, TOTAL
     Route: 048
     Dates: start: 20190310, end: 20190310

REACTIONS (4)
  - Depressed level of consciousness [Recovered/Resolved with Sequelae]
  - Hypotension [Recovered/Resolved with Sequelae]
  - Sopor [Recovered/Resolved with Sequelae]
  - Drug abuse [Recovered/Resolved with Sequelae]

NARRATIVE: CASE EVENT DATE: 20190310
